FAERS Safety Report 4586758-X (Version None)
Quarter: 2005Q1

REPORT INFORMATION
  Report Type: 
  Country: None (occurrence: None)
  Receive Date: 20050218
  Receipt Date: 20030411
  Transmission Date: 20050727
  Serious: Yes (Life-Threatening, Hospitalization, Other)
  Sender: FDA-Public Use
  Company Number: US-BRISTOL-MYERS SQUIBB COMPANY-12240164

PATIENT
  Age: 61 Year
  Sex: Male

DRUGS (15)
  1. CISPLATIN [Suspect]
     Indication: TONGUE CANCER METASTATIC
     Route: 042
     Dates: start: 20001031, end: 20001031
  2. CETUXIMAB [Suspect]
     Indication: TONGUE CANCER METASTATIC
     Dosage: LOADING DOSE 2ND DOSE: 250 MG/M^2 ON 07NOV00
     Route: 042
     Dates: start: 20001031, end: 20001031
  3. RADIATION THERAPY [Suspect]
     Indication: TONGUE CANCER METASTATIC
  4. ASPIRIN [Concomitant]
     Dates: start: 20001114, end: 20001211
  5. ERYTHROMYCIN [Concomitant]
     Route: 061
     Dates: start: 20001111, end: 20001125
  6. DOCUSATE SODIUM [Concomitant]
     Dates: start: 20001111, end: 20001208
  7. DIPHENHYDRAMINE HCL [Concomitant]
     Dates: start: 20001111, end: 20001208
  8. SODIUM BICARBONATE IN PLASTIC CONTAINER [Concomitant]
     Dates: start: 20001110, end: 20001208
  9. SENNA [Concomitant]
     Dates: start: 20001110, end: 20001207
  10. PROCHLORPERAZINE [Concomitant]
     Dates: start: 20001110, end: 20001113
  11. AMBIEN [Concomitant]
     Dates: start: 20001110, end: 20001119
  12. LACTULOSE [Concomitant]
     Dates: start: 20001110, end: 20001113
  13. KAOLIN [Concomitant]
     Dates: start: 20001110, end: 20001208
  14. POTASSIUM CHLORIDE [Concomitant]
     Route: 042
     Dates: start: 20001113, end: 20001114
  15. MAGNESIUM [Concomitant]
     Route: 042
     Dates: start: 20001113, end: 20001114

REACTIONS (31)
  - ALBUMIN URINE PRESENT [None]
  - ASTHENIA [None]
  - ATRIAL FIBRILLATION [None]
  - BLOOD CULTURE POSITIVE [None]
  - BLOOD URINE PRESENT [None]
  - CARDIAC OUTPUT DECREASED [None]
  - CELLULITIS [None]
  - CHILLS [None]
  - CULTURE URINE POSITIVE [None]
  - DEHYDRATION [None]
  - DIARRHOEA [None]
  - DIZZINESS [None]
  - DYSARTHRIA [None]
  - HYPOTENSION [None]
  - INCONTINENCE [None]
  - LYMPHADENOPATHY [None]
  - MYOCARDIAL ISCHAEMIA [None]
  - NAUSEA [None]
  - PERICARDIAL EFFUSION [None]
  - PLEURAL EFFUSION [None]
  - PNEUMONIA KLEBSIELLA [None]
  - PROTEIN URINE PRESENT [None]
  - PULMONARY OEDEMA [None]
  - PYREXIA [None]
  - RASH [None]
  - STAPHYLOCOCCAL BACTERAEMIA [None]
  - STAPHYLOCOCCAL INFECTION [None]
  - STAPHYLOCOCCAL SEPSIS [None]
  - URINARY TRACT INFECTION BACTERIAL [None]
  - URINE KETONE BODY PRESENT [None]
  - VOMITING [None]
